FAERS Safety Report 4976861-4 (Version None)
Quarter: 2006Q2

REPORT INFORMATION
  Report Type: 
  Country: None (occurrence: None)
  Receive Date: 20060419
  Receipt Date: 20060210
  Transmission Date: 20061013
  Serious: Yes (Other)
  Sender: FDA-Public Use
  Company Number: JP-AVENTIS-200611228JP

PATIENT
  Age: 65 Year
  Sex: Male

DRUGS (7)
  1. ARAVA [Suspect]
     Indication: RHEUMATOID ARTHRITIS
     Route: 048
     Dates: start: 20040318, end: 20040608
  2. ARAVA [Suspect]
     Dosage: DOSE: 10 MG ALTERNATE-DAY ADMINISTRATION
     Route: 048
     Dates: start: 20040609, end: 20040802
  3. BUFFERIN [Concomitant]
     Indication: CEREBRAL INFARCTION
     Route: 048
     Dates: start: 20040318, end: 20040608
  4. GASTER [Concomitant]
     Indication: PROPHYLAXIS AGAINST GASTROINTESTINAL ULCER
     Route: 048
     Dates: start: 20040308, end: 20040608
  5. SELBEX [Concomitant]
     Route: 048
     Dates: start: 20040308, end: 20040608
  6. PREDONINE [Concomitant]
     Indication: RHEUMATOID ARTHRITIS
     Route: 048
     Dates: start: 20040308, end: 20040608
  7. ONE-ALPHA [Concomitant]
     Indication: OSTEOPOROSIS
     Route: 048
     Dates: start: 20040208, end: 20040608

REACTIONS (6)
  - ALANINE AMINOTRANSFERASE INCREASED [None]
  - ASPARTATE AMINOTRANSFERASE INCREASED [None]
  - BLOOD BILIRUBIN INCREASED [None]
  - BLOOD LACTATE DEHYDROGENASE INCREASED [None]
  - GAMMA-GLUTAMYLTRANSFERASE INCREASED [None]
  - HEPATIC FUNCTION ABNORMAL [None]
